FAERS Safety Report 16842384 (Version 1)
Quarter: 2019Q3

REPORT INFORMATION
  Report Type: Spontaneous
  Country: AT (occurrence: AT)
  Receive Date: 20190924
  Receipt Date: 20190924
  Transmission Date: 20191005
  Serious: Yes (Life-Threatening)
  Sender: FDA-Public Use
  Company Number: AT-DEXPHARM-20190803

PATIENT
  Age: 60 Year
  Sex: Male

DRUGS (1)
  1. CHLORHEXAMED 2% [Suspect]
     Active Substance: CHLORHEXIDINE GLUCONATE
     Indication: DENTAL CARE
     Dates: start: 20190826, end: 20190826

REACTIONS (7)
  - Vomiting [Recovered/Resolved]
  - Blood pressure decreased [Recovered/Resolved]
  - Incontinence [Recovered/Resolved]
  - Syncope [Recovered/Resolved]
  - Hyperhidrosis [Recovered/Resolved]
  - Hyporesponsive to stimuli [Recovered/Resolved]
  - Disorientation [Recovered/Resolved]

NARRATIVE: CASE EVENT DATE: 20190826
